FAERS Safety Report 17358283 (Version 4)
Quarter: 2020Q1

REPORT INFORMATION
  Report Type: Spontaneous
  Country: US (occurrence: US)
  Receive Date: 20200201
  Receipt Date: 20200227
  Transmission Date: 20200409
  Serious: Yes (Hospitalization)
  Sender: FDA-Public Use
  Company Number: US-B.I. PHARMACEUTICALS,INC./RIDGEFIELD-2020-US-004959

PATIENT
  Sex: Male

DRUGS (1)
  1. JARDIANCE [Suspect]
     Active Substance: EMPAGLIFLOZIN
     Indication: PRODUCT USED FOR UNKNOWN INDICATION
     Dosage: CUT 25 MG PILLS IN 1/2
     Route: 065
     Dates: start: 2019

REACTIONS (7)
  - Dyspnoea [Unknown]
  - Blood glucose abnormal [Unknown]
  - Drug ineffective [Unknown]
  - Incorrect dose administered [Unknown]
  - Constipation [Unknown]
  - Dysphonia [Unknown]
  - Diarrhoea [Unknown]

NARRATIVE: CASE EVENT DATE: 2019
